FAERS Safety Report 9238656 (Version 1)
Quarter: 2013Q2

REPORT INFORMATION
  Report Type: Spontaneous
  Country: US (occurrence: None)
  Receive Date: 20130417
  Receipt Date: 20130417
  Transmission Date: 20140414
  Serious: Yes (Life-Threatening, Hospitalization)
  Sender: FDA-Public Use
  Company Number: None

PATIENT
  Age: 55 Year
  Sex: Male
  Weight: 99.79 kg

DRUGS (1)
  1. CITALOPRAM [Suspect]
     Indication: DEPRESSION
     Dosage: ONE 20MG @ DAY PO
     Route: 048
     Dates: start: 20130406, end: 20130410

REACTIONS (4)
  - Chest discomfort [None]
  - Blood pressure increased [None]
  - Hyperhidrosis [None]
  - Dry mouth [None]
